FAERS Safety Report 16330473 (Version 2)
Quarter: 2019Q2

REPORT INFORMATION
  Report Type: Spontaneous
  Country: US (occurrence: US)
  Receive Date: 20190520
  Receipt Date: 20190524
  Transmission Date: 20190711
  Serious: Yes (Death, Hospitalization, Other)
  Sender: FDA-Public Use
  Company Number: US-HORIZON-KRY-0314-2019

PATIENT
  Age: 70 Year
  Sex: Male

DRUGS (12)
  1. LISINOPRIL. [Concomitant]
     Active Substance: LISINOPRIL
     Dosage: 2 TAB PO QD
     Route: 048
  2. MIACALCIN [Concomitant]
     Active Substance: CALCITONIN SALMON
     Dosage: 1 SPRAY TO ONE NOSTRIL QD
     Route: 045
  3. FLONASE [Concomitant]
     Active Substance: FLUTICASONE PROPIONATE
     Dosage: 1 SPRAY Q NOSTRIL QD
  4. NEURONTIN [Concomitant]
     Active Substance: GABAPENTIN
     Dosage: 1 CAPULE PO BID
     Route: 048
  5. AURYXIA [Concomitant]
     Active Substance: TETRAFERRIC TRICITRATE DECAHYDRATE
     Dosage: 5 TABS WITH EACH MEAL
  6. MULTIVITAMIN [Concomitant]
     Active Substance: VITAMINS
     Dosage: 1 TAB QD
     Route: 048
  7. AMLODIPINE [Concomitant]
     Active Substance: AMLODIPINE BESYLATE
     Dosage: 1 PO QD
     Route: 048
  8. TAMSULOSIN [Concomitant]
     Active Substance: TAMSULOSIN
     Dosage: 2 CAPSULES QD
  9. WARFARIN [Concomitant]
     Active Substance: WARFARIN
     Dosage: 1 PO AS DIRECTED
     Route: 048
  10. KRYSTEXXA [Suspect]
     Active Substance: PEGLOTICASE
     Indication: GOUT
     Dosage: 8 MG EVERY TWO WEEKS
     Route: 042
     Dates: start: 20170322, end: 20181205
  11. TRIAMCINOLONE ACETONIDE. [Concomitant]
     Active Substance: TRIAMCINOLONE ACETONIDE
     Dosage: APPLY BID FOR 2 WEEKS THEN STOP
  12. NORTIPHYINE [Concomitant]
     Dosage: 1 TAB PO BEFORE BED
     Route: 048

REACTIONS (13)
  - Hypertensive crisis [Fatal]
  - Inappropriate schedule of product administration [Recovered/Resolved]
  - Sepsis [Fatal]
  - Acute respiratory failure [Fatal]
  - Seizure [Fatal]
  - Encephalopathy [Fatal]
  - Status epilepticus [Fatal]
  - Toe amputation [Unknown]
  - Pneumonia [Fatal]
  - Hip fracture [Unknown]
  - Fall [Unknown]
  - Hip surgery [Unknown]
  - Osteomyelitis [Unknown]

NARRATIVE: CASE EVENT DATE: 2017
